FAERS Safety Report 5313147-2 (Version None)
Quarter: 2007Q2

REPORT INFORMATION
  Report Type: 
  Country: None (occurrence: None)
  Receive Date: 20070430
  Receipt Date: 20070418
  Transmission Date: 20071010
  Serious: Yes (Other)
  Sender: FDA-Public Use
  Company Number: FR-PFIZER INC-2007032830

PATIENT
  Age: 43 Year
  Sex: Female

DRUGS (2)
  1. PREGABALIN [Suspect]
     Indication: FACIAL PAIN
     Dosage: DAILY DOSE:300MG
  2. CARBAMAZEPINE [Concomitant]

REACTIONS (6)
  - ABNORMAL BEHAVIOUR [None]
  - AGITATION [None]
  - ANTEROGRADE AMNESIA [None]
  - CONFUSIONAL STATE [None]
  - PETIT MAL EPILEPSY [None]
  - STATUS EPILEPTICUS [None]
